FAERS Safety Report 8854745 (Version 1)
Quarter: 2012Q4

REPORT INFORMATION
  Report Type: 
  Country: US (occurrence: US)
  Receive Date: 20121023
  Receipt Date: 20121023
  Transmission Date: 20130627
  Serious: Yes (Hospitalization, Other)
  Sender: FDA-Public Use
  Company Number: US-BRISTOL-MYERS SQUIBB COMPANY-16914467

PATIENT
  Sex: Male

DRUGS (1)
  1. MEGACE [Suspect]
     Dosage: route not sure either OP/IV

REACTIONS (2)
  - Urinary tract infection [Unknown]
  - Blood pressure increased [Unknown]
